FAERS Safety Report 15857306 (Version 1)
Quarter: 2019Q1

REPORT INFORMATION
  Report Type: Report from Study
  Country: BR (occurrence: BR)
  Receive Date: 20190123
  Receipt Date: 20190123
  Transmission Date: 20190417
  Serious: Yes (Other)
  Sender: FDA-Public Use
  Company Number: BR-BRISTOL-MYERS SQUIBB COMPANY-BMS-2019-002812

PATIENT
  Age: 80 Year
  Sex: Female

DRUGS (1)
  1. ABATACEPT [Suspect]
     Active Substance: ABATACEPT
     Indication: RHEUMATOID ARTHRITIS
     Dosage: 250 MG, QWK
     Route: 042

REACTIONS (4)
  - Immunodeficiency [Unknown]
  - Herpes virus infection [Unknown]
  - Wound [Unknown]
  - Off label use [Unknown]

NARRATIVE: CASE EVENT DATE: 201812
